FAERS Safety Report 5844210-5 (Version None)
Quarter: 2008Q3

REPORT INFORMATION
  Report Type: 
  Country: None (occurrence: None)
  Receive Date: 20080813
  Receipt Date: 20080801
  Transmission Date: 20090109
  Serious: Yes (Other)
  Sender: FDA-Public Use
  Company Number: PT-WYE-H05334408

PATIENT
  Age: 38 Year
  Sex: Male

DRUGS (1)
  1. SIROLIMUS [Suspect]
     Indication: PROPHYLAXIS AGAINST TRANSPLANT REJECTION
     Dosage: UNSPECIFIED
     Dates: start: 20040101

REACTIONS (4)
  - ASCITES [None]
  - CHOLELITHIASIS [None]
  - DRUG TOXICITY [None]
  - LYMPHOCELE [None]
